FAERS Safety Report 8922592 (Version 1)
Quarter: 2012Q4

REPORT INFORMATION
  Report Type: 
  Country: US (occurrence: US)
  Receive Date: 20121123
  Receipt Date: 20121123
  Transmission Date: 20130627
  Serious: Yes (Other)
  Sender: FDA-Public Use
  Company Number: PHEH2012US022756

PATIENT
  Sex: Female

DRUGS (10)
  1. DIOVAN HCT [Suspect]
     Indication: OEDEMA PERIPHERAL
     Dosage: 1 DF (320/25mg), QD
     Route: 048
  2. DIOVAN HCT [Suspect]
     Dosage: 1 DF (160/25mg) daily
  3. VALSARTAN + HIDROCLOROTIAZIDE [Suspect]
     Dosage: 320/25 mg, UNK
  4. NASAL SPRAY [Concomitant]
     Dosage: UNK UKN, UNK
  5. ATENOLOL [Concomitant]
     Dosage: UNK UKN, UNK
  6. CALCIUM [Concomitant]
     Dosage: UNK UKN, UNK
  7. COUMADIN//COUMARIN [Concomitant]
     Dosage: UNK UKN, UNK
  8. NEXIUM 1-2-3 [Concomitant]
     Dosage: UNK UKN, UNK
  9. MULTI-VIT [Concomitant]
     Dosage: UNK UKN, UNK
  10. NISOLDIPINE [Concomitant]
     Dosage: UNK UKN, UNK

REACTIONS (9)
  - Glaucoma [Unknown]
  - Visual impairment [Unknown]
  - Pain [Unknown]
  - Musculoskeletal pain [Unknown]
  - Dizziness [Unknown]
  - Headache [Unknown]
  - Pain in extremity [Unknown]
  - Arthritis [Unknown]
  - Incorrect dose administered [Unknown]
